FAERS Safety Report 4945372-4 (Version None)
Quarter: 2006Q1

REPORT INFORMATION
  Report Type: 
  Country: None (occurrence: None)
  Receive Date: 20060315
  Receipt Date: 20060315
  Transmission Date: 20060701
  Serious: Yes (Death, Hospitalization)
  Sender: FDA-Public Use
  Company Number: None

PATIENT
  Sex: Female
  Weight: 10.5 kg

DRUGS (5)
  1. CYCLOPHOSPHAMIDE [Suspect]
     Indication: LYMPHOCYTIC LEUKAEMIA
     Dosage: 490 MG
     Dates: start: 20060207, end: 20060207
  2. CYTARABINE [Suspect]
     Dosage: 296 MG
     Dates: start: 20060207, end: 20060217
  3. DEXAMETHASONE TAB [Suspect]
     Dosage: 94.5 MG
     Dates: start: 20060111, end: 20060131
  4. DOXORUBICIN HCL [Suspect]
     Dosage: 34.5 MG
     Dates: start: 20060111, end: 20060125
  5. METHOTREXATE [Suspect]
     Dosage: 20 MG
     Dates: start: 20060111, end: 20060207

REACTIONS (6)
  - ACUTE RESPIRATORY DISTRESS SYNDROME [None]
  - NEUTROPENIA [None]
  - PNEUMOMEDIASTINUM [None]
  - PNEUMONIA [None]
  - SUBCUTANEOUS EMPHYSEMA [None]
  - THERAPY NON-RESPONDER [None]
